FAERS Safety Report 4988605-0 (Version None)
Quarter: 2006Q2

REPORT INFORMATION
  Report Type: 
  Country: None (occurrence: None)
  Receive Date: 20060426
  Receipt Date: 20060407
  Transmission Date: 20061013
  Serious: Yes (Death, Hospitalization)
  Sender: FDA-Public Use
  Company Number: CH200602001758

PATIENT
  Age: 60 Year
  Sex: Female

DRUGS (16)
  1. ZYPREXA [Suspect]
     Indication: MENTAL DISORDER
     Dosage: 5 MG, DAILY (1/D), ORAL; SEE IMAGE
     Route: 048
     Dates: start: 20050912, end: 20050914
  2. ZYPREXA [Suspect]
     Indication: MENTAL DISORDER
     Dosage: 5 MG, DAILY (1/D), ORAL; SEE IMAGE
     Route: 048
     Dates: start: 20050915, end: 20050918
  3. ZYPREXA [Suspect]
     Indication: MENTAL DISORDER
     Dosage: 5 MG, DAILY (1/D), ORAL; SEE IMAGE
     Route: 048
     Dates: start: 20051101, end: 20051209
  4. ZYPREXA [Suspect]
     Indication: MENTAL DISORDER
     Dosage: 5 MG, DAILY (1/D), ORAL; SEE IMAGE
     Route: 048
     Dates: start: 20051210, end: 20051230
  5. ZYPREXA [Suspect]
     Indication: MENTAL DISORDER
     Dosage: 5 MG, DAILY (1/D), ORAL; SEE IMAGE
     Route: 048
     Dates: start: 20050919
  6. BENERVA (THIAMINE HYDROCHLORIDE) [Concomitant]
  7. VITAMIN B1 TAB [Concomitant]
  8. VITAMIN B2 (RIBOFLAVIN) [Concomitant]
  9. VITAMIN B6 [Concomitant]
  10. CYANOCOBALAMIN [Concomitant]
  11. BECOZYM (BIOTIN, CALCIUM PANTOTHENATE, CYANOCOBALAMIN, NICOTINAMIDE, P [Concomitant]
  12. FERRUM HAUSMANN /SCH/ (FERROUS FUMARATE, IRON) [Concomitant]
  13. CALPEROS (CALCIUM CARBONATE) [Concomitant]
  14. FOLVITE /CAN/ (FOLIC ACID) [Concomitant]
  15. MALTOFER (FERRIC HYDROXIDE POLYMALTOSE COMPLEX) [Concomitant]
  16. DUPHALAC /NET/ (LACTULOSE) [Concomitant]

REACTIONS (19)
  - AFFECTIVE DISORDER [None]
  - BLOOD ALKALINE PHOSPHATASE INCREASED [None]
  - BLOOD IRON DECREASED [None]
  - COGNITIVE DISORDER [None]
  - CONFUSIONAL STATE [None]
  - FALL [None]
  - FEELING OF DESPAIR [None]
  - GENERAL PHYSICAL HEALTH DETERIORATION [None]
  - HAEMATOMA [None]
  - HAEMOGLOBIN DECREASED [None]
  - HALLUCINATION [None]
  - INTENTIONAL OVERDOSE [None]
  - LOSS OF CONSCIOUSNESS [None]
  - MEMORY IMPAIRMENT [None]
  - PLATELET COUNT INCREASED [None]
  - RED BLOOD CELL SEDIMENTATION RATE INCREASED [None]
  - SUICIDE ATTEMPT [None]
  - TREATMENT NONCOMPLIANCE [None]
  - WEIGHT INCREASED [None]
